FAERS Safety Report 7441564-3 (Version None)
Quarter: 2011Q2

REPORT INFORMATION
  Report Type: 
  Country: None (occurrence: None)
  Receive Date: 20110428
  Receipt Date: 20110425
  Transmission Date: 20111010
  Serious: Yes (Other)
  Sender: FDA-Public Use
  Company Number: US-PFIZER INC-2008062535

PATIENT
  Sex: Female
  Weight: 68 kg

DRUGS (5)
  1. NORVASC [Concomitant]
     Indication: BLOOD PRESSURE
     Dosage: UNK
     Dates: start: 19940101, end: 20080101
  2. PROVERA [Suspect]
     Indication: HORMONE REPLACEMENT THERAPY
     Dosage: 10 MG, UNK
     Route: 048
     Dates: start: 19940201, end: 19960101
  3. PREMPRO [Suspect]
     Indication: HORMONE REPLACEMENT THERAPY
     Dosage: UNK
     Route: 048
     Dates: start: 19950101, end: 19970101
  4. SYNTHROID [Concomitant]
     Indication: HYPOTHYROIDISM
     Dosage: UNK
     Dates: start: 19900101, end: 20080101
  5. PREMARIN [Suspect]
     Indication: HORMONE REPLACEMENT THERAPY
     Dosage: 0.625 MG, UNK
     Route: 048
     Dates: start: 19940201, end: 19960101

REACTIONS (1)
  - BREAST CANCER FEMALE [None]
